FAERS Safety Report 20585129 (Version 4)
Quarter: 2022Q2

REPORT INFORMATION
  Report Type: Spontaneous
  Country: CA (occurrence: CA)
  Receive Date: 20220311
  Receipt Date: 20220628
  Transmission Date: 20220720
  Serious: Yes (Other)
  Sender: FDA-Public Use
  Company Number: CA-CELLTRION INC.-2021CA018231

PATIENT

DRUGS (6)
  1. INFLECTRA [Suspect]
     Active Substance: INFLIXIMAB-DYYB
     Indication: Crohn^s disease
     Dosage: 7500UG/KG,800 MG IN PRESCRIPTION (INDUCTION: WKS 0, 2 AND 6, THEN EVERY 8 WKS.WK 0 DOSE IN HOSPITAL)
     Route: 042
     Dates: start: 20211116, end: 20220301
  2. INFLECTRA [Suspect]
     Active Substance: INFLIXIMAB-DYYB
     Dosage: 800 MG (INDUCTION: WKS 0, 2 AND 6, THEN EVERY 8 WKS)
     Route: 042
     Dates: start: 20211130
  3. INFLECTRA [Suspect]
     Active Substance: INFLIXIMAB-DYYB
     Dosage: 682 MG (INDUCTION: WKS 0, 2 AND 6, THEN EVERY 8 WKS)
     Route: 042
     Dates: start: 20211229
  4. INFLECTRA [Suspect]
     Active Substance: INFLIXIMAB-DYYB
     Dosage: 7500 UG/KG, 800 MG IN PRESCRIPTION ((INDUCTION: WKS 0, 2 AND 6, THEN EVERY 8 WKS)
     Route: 042
     Dates: start: 20220301
  5. INFLECTRA [Suspect]
     Active Substance: INFLIXIMAB-DYYB
     Dosage: 1 DF, 7.5 MG/KG, 1X8 WEEK
     Route: 042
     Dates: start: 20220426
  6. PREDNISONE [Concomitant]
     Active Substance: PREDNISONE
     Dosage: 1DF, DOSAGE INFO IS NOT AVAILABLE
     Route: 065

REACTIONS (4)
  - Condition aggravated [Recovering/Resolving]
  - Drug level decreased [Not Recovered/Not Resolved]
  - Poor venous access [Unknown]
  - Inappropriate schedule of product administration [Unknown]

NARRATIVE: CASE EVENT DATE: 20211130
